FAERS Safety Report 6048406-1 (Version None)
Quarter: 2009Q1

REPORT INFORMATION
  Report Type: 
  Country: None (occurrence: None)
  Receive Date: 20090123
  Receipt Date: 20090116
  Transmission Date: 20090719
  Serious: Yes (Hospitalization)
  Sender: FDA-Public Use
  Company Number: A0757515A

PATIENT
  Age: 59 Year
  Sex: Female
  Weight: 86.4 kg

DRUGS (2)
  1. AVANDIA [Suspect]
     Route: 065
     Dates: start: 20020201, end: 20071201
  2. AVANDAMET [Suspect]
     Route: 065
     Dates: start: 20031101, end: 20050401

REACTIONS (2)
  - MYOCARDIAL INFARCTION [None]
  - MYOCARDIAL ISCHAEMIA [None]
